FAERS Safety Report 6098894-X (Version None)
Quarter: 2009Q1

REPORT INFORMATION
  Report Type: 
  Country: None (occurrence: None)
  Receive Date: 20090302
  Receipt Date: 20090219
  Transmission Date: 20090719
  Serious: Yes (Other)
  Sender: FDA-Public Use
  Company Number: GR-ELI_LILLY_AND_COMPANY-GR200902004779

PATIENT
  Age: 55 Year
  Sex: Female

DRUGS (6)
  1. BYETTA [Suspect]
     Indication: DIABETES MELLITUS
     Dosage: 5 UG, 2/D
     Route: 058
     Dates: start: 20090202, end: 20090206
  2. VALSARTAN [Concomitant]
     Indication: HYPERTENSION
     Dosage: 80 MG, DAILY (1/D)( 3 TABLETS)
     Route: 048
  3. NORVASC [Concomitant]
     Indication: HYPERTENSION
     Dosage: 5 MG, 2/D
     Route: 048
  4. SOLOSA [Concomitant]
     Indication: DIABETES MELLITUS
     Dosage: 3 MG, 4/D
     Route: 048
  5. GLUCOPHAGE [Concomitant]
     Indication: DIABETES MELLITUS
     Dosage: 850 MG, DAILY (1/D) (3 TABLETS)
     Route: 048
  6. DIURETICS [Concomitant]
     Dosage: UNK, UNKNOWN
     Route: 065
     Dates: start: 20090206

REACTIONS (1)
  - HYPERTENSION [None]
